FAERS Safety Report 5223179-0 (Version None)
Quarter: 2007Q1

REPORT INFORMATION
  Report Type: 
  Country: None (occurrence: None)
  Receive Date: 20061201
  Receipt Date: 20060724
  Transmission Date: 20070707
  Serious: No
  Sender: FDA-Public Use
  Company Number: 2006PV009109

PATIENT
  Age: 51 Year
  Sex: Female
  Weight: 153.7694 kg

DRUGS (10)
  1. BYETTA [Suspect]
     Indication: DIABETES MELLITUS NON-INSULIN-DEPENDENT
     Dosage: 10 MCG;BID;SC 5 MCG;BID;SC 5 MCG;BID;SC
     Route: 058
     Dates: start: 20050808, end: 20051110
  2. BYETTA [Suspect]
     Indication: DIABETES MELLITUS NON-INSULIN-DEPENDENT
     Dosage: 10 MCG;BID;SC 5 MCG;BID;SC 5 MCG;BID;SC
     Route: 058
     Dates: start: 20051111, end: 20060222
  3. BYETTA [Suspect]
     Indication: DIABETES MELLITUS NON-INSULIN-DEPENDENT
     Dosage: 10 MCG;BID;SC 5 MCG;BID;SC 5 MCG;BID;SC
     Route: 058
     Dates: start: 20060401
  4. BYETTA [Suspect]
  5. GLUCOPHAGE [Concomitant]
  6. PRANDIN [Concomitant]
  7. ZOCOR [Concomitant]
  8. TRICOR [Concomitant]
  9. ZANTAC [Concomitant]
  10. SIMETHICONE [Concomitant]

REACTIONS (8)
  - ABDOMINAL PAIN UPPER [None]
  - GLYCOSYLATED HAEMOGLOBIN INCREASED [None]
  - NASOPHARYNGITIS [None]
  - NAUSEA [None]
  - STRESS [None]
  - THERAPEUTIC RESPONSE UNEXPECTED [None]
  - WEIGHT DECREASED [None]
  - WEIGHT INCREASED [None]
